FAERS Safety Report 8035944-5 (Version None)
Quarter: 2012Q1

REPORT INFORMATION
  Report Type: 
  Country: None (occurrence: None)
  Receive Date: 20120111
  Receipt Date: 20120103
  Transmission Date: 20120608
  Serious: Yes (Hospitalization, Other)
  Sender: FDA-Public Use
  Company Number: US-BAYER-2011-036245

PATIENT
  Age: 23 Year
  Sex: Female
  Weight: 90.703 kg

DRUGS (16)
  1. DROSPIRENONE AND ETHINYL ESTRADIOL [Suspect]
     Indication: PREMENSTRUAL SYNDROME
     Dosage: UNK
     Dates: start: 20040801, end: 20051001
  2. DROSPIRENONE AND ETHINYL ESTRADIOL [Suspect]
     Indication: CONTRACEPTION
     Dosage: UNK
     Dates: start: 20060401
  3. AUGMENTIN XR [Concomitant]
     Dosage: UNK
     Dates: start: 20060502
  4. YASMIN [Suspect]
     Indication: PREMENSTRUAL SYNDROME
     Dosage: UNK
     Dates: start: 20040801, end: 20051001
  5. YASMIN [Suspect]
     Dosage: UNK
     Dates: start: 20060701, end: 20061001
  6. YASMIN [Suspect]
     Dosage: UNK
     Dates: start: 20091201, end: 20100101
  7. DROSPIRENONE AND ETHINYL ESTRADIOL [Suspect]
     Dosage: UNK
     Dates: start: 20090501, end: 20091001
  8. DROSPIRENONE AND ETHINYL ESTRADIOL [Suspect]
     Dosage: UNK
     Dates: start: 20091201, end: 20100101
  9. YASMIN [Suspect]
     Dosage: UNK
     Dates: start: 20080401, end: 20090301
  10. DROSPIRENONE AND ETHINYL ESTRADIOL [Suspect]
     Dosage: UNK
     Dates: start: 20080401, end: 20090301
  11. YASMIN [Suspect]
     Dosage: UNK
     Dates: start: 20061201, end: 20080201
  12. YASMIN [Suspect]
     Dosage: UNK
     Dates: start: 20090501, end: 20091001
  13. DOXYCYCLINE [Concomitant]
     Dosage: UNK
     Dates: start: 20060521
  14. YASMIN [Suspect]
     Indication: CONTRACEPTION
     Dosage: UNK
     Dates: start: 20060401
  15. DROSPIRENONE AND ETHINYL ESTRADIOL [Suspect]
     Dosage: UNK
     Dates: start: 20060701, end: 20061001
  16. DROSPIRENONE AND ETHINYL ESTRADIOL [Suspect]
     Dosage: UNK
     Dates: start: 20061201, end: 20080201

REACTIONS (4)
  - EMOTIONAL DISTRESS [None]
  - PAIN [None]
  - GALLBLADDER INJURY [None]
  - CHOLELITHIASIS [None]
